FAERS Safety Report 8825418 (Version 1)
Quarter: 2012Q4

REPORT INFORMATION
  Report Type: 
  Country: US (occurrence: US)
  Receive Date: 20121004
  Receipt Date: 20121004
  Transmission Date: 20130627
  Serious: No
  Sender: FDA-Public Use
  Company Number: US-B.I. PHARMACEUTICALS,INC./RIDGEFIELD-2012-BP-23464BP

PATIENT
  Sex: Male
  Weight: 79 kg

DRUGS (6)
  1. AGGRENOX [Suspect]
     Indication: CEREBROVASCULAR ACCIDENT PROPHYLAXIS
     Route: 048
     Dates: start: 201208, end: 20120820
  2. AGGRENOX [Suspect]
     Route: 048
     Dates: start: 20120820
  3. LEVOXYL [Concomitant]
     Indication: HYPOTHYROIDISM
     Dosage: 0.05 mg
     Route: 048
     Dates: start: 2006
  4. OXYBUTYNIN [Concomitant]
     Indication: BLADDER PAIN
     Dosage: 5 mg
     Route: 048
     Dates: start: 2009
  5. METOPROLOL [Concomitant]
     Indication: CARDIAC DISORDER
     Dosage: 50 mg
     Route: 048
     Dates: start: 2002
  6. PRILOSEC [Concomitant]
     Indication: GASTRITIS EROSIVE
     Dosage: 20 mg
     Route: 048
     Dates: start: 1997

REACTIONS (3)
  - Musculoskeletal stiffness [Not Recovered/Not Resolved]
  - Muscle spasms [Not Recovered/Not Resolved]
  - Neuropathy peripheral [Not Recovered/Not Resolved]
